FAERS Safety Report 9692637 (Version 1)
Quarter: 2013Q4

REPORT INFORMATION
  Report Type: Report from Study
  Country: AR (occurrence: AR)
  Receive Date: 20131118
  Receipt Date: 20131118
  Transmission Date: 20140711
  Serious: Yes (Hospitalization)
  Sender: FDA-Public Use
  Company Number: PHHY2013AR130386

PATIENT
  Sex: Female

DRUGS (2)
  1. ONBREZ [Suspect]
     Indication: PNEUMONIA
     Dosage: UNK UKN, UNK
     Dates: end: 20131014
  2. ONBREZ [Suspect]
     Indication: OFF LABEL USE
     Dosage: UNK UKN, UNK
     Dates: start: 20131111

REACTIONS (3)
  - Swelling [Recovered/Resolved]
  - Back pain [Unknown]
  - Cough [Unknown]
